FAERS Safety Report 7554781-9 (Version None)
Quarter: 2011Q2

REPORT INFORMATION
  Report Type: 
  Country: None (occurrence: None)
  Receive Date: 20110617
  Receipt Date: 20110607
  Transmission Date: 20111010
  Serious: Yes (Hospitalization, Other)
  Sender: FDA-Public Use
  Company Number: JP-BRISTOL-MYERS SQUIBB COMPANY-15821986

PATIENT
  Age: 86 Year
  Sex: Female

DRUGS (15)
  1. LAC-B [Concomitant]
  2. FORSENID [Concomitant]
  3. RIZE [Concomitant]
  4. ORENCIA [Suspect]
     Dosage: 18NOV10 02DEC10 12JAN2011:500MG
     Route: 041
     Dates: start: 20101104
  5. METHOTREXATE [Suspect]
     Dates: start: 20070225
  6. ACETAMINOPHEN [Concomitant]
     Indication: RHEUMATOID ARTHRITIS
  7. BUCILLAMINE [Concomitant]
  8. ISONIAZID [Concomitant]
  9. CYTOTEC [Concomitant]
  10. FOLIC ACID [Concomitant]
  11. RABEPRAZOLE SODIUM [Concomitant]
  12. FERRUM [Concomitant]
  13. ASCORBIC ACID [Concomitant]
  14. DIAINAMIX [Concomitant]
  15. BONALON [Concomitant]

REACTIONS (2)
  - PNEUMONIA ASPIRATION [None]
  - LIVER DISORDER [None]
